FAERS Safety Report 9708077 (Version 3)
Quarter: 2014Q1

REPORT INFORMATION
  Report Type: Report from Study
  Country: US (occurrence: US)
  Receive Date: 20131125
  Receipt Date: 20140203
  Transmission Date: 20141002
  Serious: Yes (Hospitalization, Other)
  Sender: FDA-Public Use
  Company Number: US-BAXTER-2013BAX046133

PATIENT
  Age: 53 Year
  Sex: Female

DRUGS (5)
  1. GAMMAGARD LIQUID [Suspect]
     Indication: PRIMARY IMMUNODEFICIENCY SYNDROME
     Route: 042
     Dates: start: 201212, end: 201306
  2. GAMMAGARD LIQUID [Suspect]
     Route: 042
     Dates: start: 201306, end: 201310
  3. GAMMAGARD LIQUID [Suspect]
     Route: 042
     Dates: start: 201310
  4. GAMMAGARD LIQUID [Suspect]
     Route: 042
     Dates: start: 20131028
  5. GAMMAGARD LIQUID [Suspect]

REACTIONS (13)
  - Sinusitis [Not Recovered/Not Resolved]
  - Rheumatoid arthritis [Unknown]
  - Thrombosis [Not Recovered/Not Resolved]
  - Pneumonia [Recovering/Resolving]
  - Pulmonary oedema [Recovering/Resolving]
  - International normalised ratio abnormal [Recovering/Resolving]
  - Drug dose omission [Unknown]
  - Sinusitis [Unknown]
  - Swelling face [Recovering/Resolving]
  - Local swelling [Recovering/Resolving]
  - Epistaxis [Unknown]
  - Disease recurrence [Unknown]
  - Tremor [Unknown]
